FAERS Safety Report 4327866-8 (Version None)
Quarter: 2004Q1

REPORT INFORMATION
  Report Type: 
  Country: None (occurrence: None)
  Receive Date: 20040325
  Receipt Date: 20040309
  Transmission Date: 20041129
  Serious: Yes (Hospitalization)
  Sender: FDA-Public Use
  Company Number: AU-JNJFOC-20040304209

PATIENT
  Age: 82 Year
  Sex: Female

DRUGS (12)
  1. TRAMADOL HCL [Suspect]
     Indication: PAIN
     Dosage: 50 MG, IN 1 DAY, ORAL
     Route: 048
  2. TEGRETOL [Suspect]
     Indication: PAIN
     Dosage: 400 MG, ORAL
     Route: 048
  3. CELEBREX [Suspect]
     Indication: PAIN
     Dosage: 200 MG, ORAL
     Route: 048
  4. ACETYLSALICYLIC ACID SRT [Suspect]
     Indication: MYOCARDIAL ISCHAEMIA
     Dosage: 100 MG, ORAL
     Route: 048
  5. FUROSEMIDE [Suspect]
     Dosage: 40 MG, ORAL
     Route: 048
  6. CANDESARTAN CILEXETIL (CANDESARTAN CILEXETIL) [Suspect]
     Dosage: 8 MG, ORAL
     Route: 048
  7. ALLOPURINOL [Suspect]
     Dosage: 300 MG, ORAL
     Route: 048
  8. OXAZEPAM [Suspect]
     Dosage: 30 MG, ORAL
     Route: 048
  9. PRAVASTATIN [Concomitant]
  10. OMEPRAZOLE [Concomitant]
  11. CALCIUM CARBONATE (CALCIUM CARBONATE) [Concomitant]
  12. ACETAMINOPHEN [Concomitant]

REACTIONS (5)
  - BLOOD CREATININE INCREASED [None]
  - CONFUSIONAL STATE [None]
  - CREATININE RENAL CLEARANCE DECREASED [None]
  - HERPES ZOSTER [None]
  - RENAL IMPAIRMENT [None]
